FAERS Safety Report 8921298 (Version 1)
Quarter: 2012Q4

REPORT INFORMATION
  Report Type: 
  Country: GB (occurrence: GB)
  Receive Date: 20121121
  Receipt Date: 20121121
  Transmission Date: 20130627
  Serious: Yes (Hospitalization)
  Sender: FDA-Public Use
  Company Number: GB-TEVA-371030ISR

PATIENT
  Age: 36 Year
  Sex: Female

DRUGS (1)
  1. COPAXONE [Suspect]
     Route: 058

REACTIONS (9)
  - Chest discomfort [Recovered/Resolved]
  - Syncope [Recovered/Resolved]
  - Vomiting [Recovered/Resolved]
  - Diarrhoea [Recovered/Resolved]
  - Incontinence [Recovered/Resolved]
  - Injection site haemorrhage [Unknown]
  - Hypotension [Unknown]
  - Pulse pressure decreased [Unknown]
  - Livedo reticularis [Unknown]
